FAERS Safety Report 12806382 (Version 1)
Quarter: 2016Q4

REPORT INFORMATION
  Report Type: Spontaneous
  Country: US (occurrence: US)
  Receive Date: 20161004
  Receipt Date: 20161004
  Transmission Date: 20170207
  Serious: Yes (Other)
  Sender: FDA-Public Use
  Company Number: None

PATIENT
  Age: 15 Year
  Sex: Female
  Weight: 46.7 kg

DRUGS (6)
  1. VASOTEC [Suspect]
     Active Substance: ENALAPRIL MALEATE
     Indication: PROTEINURIA
     Route: 048
     Dates: start: 20160630, end: 20160716
  2. LEPTIN [Concomitant]
     Active Substance: LEPTIN HUMAN
  3. INSULIN HUMAN [Concomitant]
     Active Substance: INSULIN HUMAN
  4. GEMFIBROZIL. [Concomitant]
     Active Substance: GEMFIBROZIL
  5. METFORMIN [Concomitant]
     Active Substance: METFORMIN HYDROCHLORIDE
  6. FERROUS SULFATE. [Concomitant]
     Active Substance: FERROUS SULFATE

REACTIONS (5)
  - Angioedema [None]
  - Cardio-respiratory arrest [None]
  - Pruritus [None]
  - Rash erythematous [None]
  - Dizziness [None]

NARRATIVE: CASE EVENT DATE: 20160718
